FAERS Safety Report 7197691-1 (Version None)
Quarter: 2010Q4

REPORT INFORMATION
  Report Type: 
  Country: None (occurrence: None)
  Receive Date: 20101227
  Receipt Date: 20101206
  Transmission Date: 20110411
  Serious: No
  Sender: FDA-Public Use
  Company Number: US-B.I. PHARMACEUTICALS,INC./RIDGEFIELD-2010-BP-13927BP

PATIENT
  Age: 84 Year
  Sex: Male

DRUGS (4)
  1. PRADAXA [Suspect]
     Indication: ATRIAL FIBRILLATION
     Dosage: 300 MG
     Route: 048
     Dates: end: 20101101
  2. BETAPACE [Concomitant]
     Indication: ATRIAL FIBRILLATION
  3. ASPIRIN [Concomitant]
     Indication: PROPHYLAXIS
  4. POTASSIUM [Concomitant]
     Indication: PROPHYLAXIS

REACTIONS (3)
  - ABDOMINAL PAIN UPPER [None]
  - ERUCTATION [None]
  - FLATULENCE [None]
